FAERS Safety Report 10242008 (Version 1)
Quarter: 2014Q2

REPORT INFORMATION
  Report Type: Spontaneous
  Country: US (occurrence: US)
  Receive Date: 20140617
  Receipt Date: 20140617
  Transmission Date: 20141212
  Serious: Yes (Hospitalization)
  Sender: FDA-Public Use
  Company Number: US-GLAXOSMITHKLINE-A1076905A

PATIENT
  Age: 66 Year
  Sex: Female

DRUGS (9)
  1. ALLI [Suspect]
     Route: 048
  2. ASPIRIN [Suspect]
  3. PLAVIX [Suspect]
  4. SEROQUEL [Suspect]
  5. TRAZODONE [Suspect]
  6. AMBIEN [Suspect]
  7. TOXIC AGENT [Suspect]
  8. PAINKILLER (UNKNOWN) [Suspect]
     Route: 062
  9. ANTI-CHOLESTEROL MEDICATION [Suspect]
     Indication: BLOOD CHOLESTEROL INCREASED

REACTIONS (10)
  - Chapped lips [Not Recovered/Not Resolved]
  - Oral infection [Not Recovered/Not Resolved]
  - Labyrinthitis [Not Recovered/Not Resolved]
  - Infection [Not Recovered/Not Resolved]
  - Localised infection [Not Recovered/Not Resolved]
  - Dizziness [Not Recovered/Not Resolved]
  - Malaise [Not Recovered/Not Resolved]
  - Fall [Not Recovered/Not Resolved]
  - Drug administration error [None]
  - Drug dose omission [None]
